FAERS Safety Report 5244618-5 (Version None)
Quarter: 2007Q1

REPORT INFORMATION
  Report Type: 
  Country: None (occurrence: None)
  Receive Date: 20070222
  Receipt Date: 20070212
  Transmission Date: 20070707
  Serious: Yes (Death)
  Sender: FDA-Public Use
  Company Number: RU-SHR-RU-2006-037658

PATIENT
  Age: 64 Year
  Sex: Female

DRUGS (1)
  1. FLUDARABINE PHOSPHATE  (SH T 586 C) [Suspect]
     Indication: CHRONIC LYMPHOCYTIC LEUKAEMIA
     Route: 048

REACTIONS (3)
  - CARDIAC FAILURE ACUTE [None]
  - RENAL FAILURE ACUTE [None]
  - TUMOUR LYSIS SYNDROME [None]
